FAERS Safety Report 23241928 (Version 1)
Quarter: 2023Q4

REPORT INFORMATION
  Report Type: Report from Study
  Country: US (occurrence: None)
  Receive Date: 20231129
  Receipt Date: 20231129
  Transmission Date: 20240109
  Serious: Yes (Hospitalization, Other)
  Sender: FDA-Public Use
  Company Number: 2023A265268

PATIENT
  Sex: Female

DRUGS (1)
  1. LYNPARZA [Suspect]
     Active Substance: OLAPARIB
     Indication: Ovarian cancer
     Route: 048
     Dates: start: 20200929

REACTIONS (6)
  - Gastrointestinal disorder [Unknown]
  - Carbohydrate antigen 125 increased [Unknown]
  - Scar [Unknown]
  - Diarrhoea [Unknown]
  - Asthenia [Unknown]
  - Decreased activity [Unknown]
